FAERS Safety Report 5468136-4 (Version None)
Quarter: 2007Q3

REPORT INFORMATION
  Report Type: 
  Country: None (occurrence: None)
  Receive Date: 20070921
  Receipt Date: 20070907
  Transmission Date: 20080115
  Serious: Yes (Hospitalization)
  Sender: FDA-Public Use
  Company Number: GXKR2004ZA00770

PATIENT
  Age: 60 Year
  Sex: Male

DRUGS (1)
  1. CLARITHROMYCIN [Suspect]
     Indication: PYREXIA
     Dosage: 500 MG, ORAL
     Route: 048

REACTIONS (7)
  - AGRANULOCYTOSIS [None]
  - BACTERIAL INFECTION [None]
  - BONE MARROW DISORDER [None]
  - CONFUSIONAL STATE [None]
  - MONOCYTOSIS [None]
  - VOMITING [None]
  - WHITE BLOOD CELL COUNT DECREASED [None]
